FAERS Safety Report 4523397-0 (Version None)
Quarter: 2004Q4

REPORT INFORMATION
  Report Type: 
  Country: None (occurrence: None)
  Receive Date: 20041209
  Receipt Date: 20041126
  Transmission Date: 20050328
  Serious: Yes (Disabling)
  Sender: FDA-Public Use
  Company Number: 2004073860

PATIENT
  Age: 50 Year
  Sex: Female

DRUGS (10)
  1. GEODON [Suspect]
     Indication: BIPOLAR II DISORDER
     Dosage: 160 MG (2 IN 1 D), ORAL
     Route: 048
     Dates: start: 20040806, end: 20040924
  2. GEODON [Suspect]
     Indication: BIPOLAR II DISORDER
     Dosage: 160 MG (2 IN 1 D), ORAL
     Route: 048
     Dates: end: 20040924
  3. VALPROATE SODIUM [Concomitant]
  4. PIOGLITAZONE HCL [Concomitant]
  5. RABEPRAZOLE SODIUM [Concomitant]
  6. MELOXICAM (MELOXICAM) [Concomitant]
  7. METFORMIN HCL [Concomitant]
  8. TRAMADOL HCL [Concomitant]
  9. CETIRIZINE HCL [Concomitant]
  10. KARVEA HCT (HYDROCHLOROTHIAZIDE, IRBESARTAN) [Concomitant]

REACTIONS (5)
  - ATAXIA [None]
  - BALANCE DISORDER [None]
  - DIFFICULTY IN WALKING [None]
  - GAIT DISTURBANCE [None]
  - TREMOR [None]
